FAERS Safety Report 8983139 (Version 2)
Quarter: 2013Q1

REPORT INFORMATION
  Report Type: Spontaneous
  Country: US (occurrence: US)
  Receive Date: 20121224
  Receipt Date: 20130119
  Transmission Date: 20140127
  Serious: No
  Sender: FDA-Public Use
  Company Number: US-009507513-1212USA006448

PATIENT
  Sex: Male

DRUGS (4)
  1. JANUMET [Suspect]
     Indication: BLOOD GLUCOSE INCREASED
     Dosage: 1 DF, BID
     Route: 048
     Dates: start: 201012, end: 201211
  2. JANUMET [Suspect]
     Dosage: 1 DF, BID
     Route: 048
     Dates: start: 201211
  3. OMEPRAZOLE [Concomitant]
  4. SIMVASTATIN [Concomitant]

REACTIONS (2)
  - Blood glucose increased [Not Recovered/Not Resolved]
  - Drug ineffective [Not Recovered/Not Resolved]
